FAERS Safety Report 8459910-0 (Version None)
Quarter: 2012Q2

REPORT INFORMATION
  Report Type: 
  Country: None (occurrence: None)
  Receive Date: 20120622
  Receipt Date: 20120619
  Transmission Date: 20120825
  Serious: Yes (Death, Hospitalization, Other)
  Sender: FDA-Public Use
  Company Number: PHHY2012BR052998

PATIENT
  Sex: Male

DRUGS (5)
  1. OMEPRAZOLE [Concomitant]
     Indication: GASTRIC DISORDER
     Dosage: 20 MG, QD
  2. EXELON [Suspect]
     Indication: DEMENTIA ALZHEIMER'S TYPE
     Dosage: 4.6 MG, QD
     Route: 062
     Dates: start: 20120424, end: 20120502
  3. DIMETICONE [Concomitant]
     Indication: FLATULENCE
     Dosage: 20 MG, QD
  4. LOSARTAN POTASSIUM [Concomitant]
     Indication: BLOOD PRESSURE
     Dosage: 100 MG, UNK
  5. HYDROCHLOROTHIAZIDE [Concomitant]
     Indication: BLOOD PRESSURE
     Dosage: 12.5 MG, QD, AT MORNING

REACTIONS (5)
  - PNEUMONIA [None]
  - VASCULAR DEMENTIA [None]
  - ANAEMIA [None]
  - RENAL FAILURE [None]
  - MYOCARDIAL INFARCTION [None]
